FAERS Safety Report 4821187-2 (Version None)
Quarter: 2005Q4

REPORT INFORMATION
  Report Type: 
  Country: None (occurrence: None)
  Receive Date: 20051103
  Receipt Date: 20051021
  Transmission Date: 20060501
  Serious: Yes (Other)
  Sender: FDA-Public Use
  Company Number: 2005145732

PATIENT
  Age: 61 Year
  Sex: Female
  Weight: 67.1324 kg

DRUGS (10)
  1. VFEND [Suspect]
     Indication: BRONCHOPULMONARY ASPERGILLOSIS
     Dosage: 40 MG (20 MG, 2 IN 1 D)
  2. AMIKACIN [Concomitant]
  3. ITRACONAZOLE [Concomitant]
  4. LORATADINE [Concomitant]
  5. METHYLPREDNISOLONE [Concomitant]
  6. CLONIDINE [Concomitant]
  7. BENADRYL [Concomitant]
  8. MULTIVITAMIN [Concomitant]
  9. VITAMIN A (NATURAL) CAP [Concomitant]
  10. VITAMIN C (VITAMIN C) [Concomitant]

REACTIONS (5)
  - CHROMATOPSIA [None]
  - CONDITION AGGRAVATED [None]
  - DYSPEPSIA [None]
  - DYSPNOEA [None]
  - PSYCHOMOTOR HYPERACTIVITY [None]
